FAERS Safety Report 13952682 (Version 1)
Quarter: 2017Q3

REPORT INFORMATION
  Report Type: Report from Study
  Country: CN (occurrence: CN)
  Receive Date: 20170911
  Receipt Date: 20170911
  Transmission Date: 20171128
  Serious: Yes (Other)
  Sender: FDA-Public Use
  Company Number: CN-ROCHE-1986253

PATIENT

DRUGS (3)
  1. PEMETREXED. [Suspect]
     Active Substance: PEMETREXED
     Indication: NON-SMALL CELL LUNG CANCER
     Route: 065
  2. PACLITAXEL. [Suspect]
     Active Substance: PACLITAXEL
     Indication: NON-SMALL CELL LUNG CANCER
     Route: 065
  3. BEVACIZUMAB. [Suspect]
     Active Substance: BEVACIZUMAB
     Indication: NON-SMALL CELL LUNG CANCER
     Route: 065

REACTIONS (17)
  - Neutropenia [Unknown]
  - Vomiting [Unknown]
  - Haemorrhage [Unknown]
  - Gamma-glutamyltransferase increased [Unknown]
  - Stomatitis [Unknown]
  - Rash [Unknown]
  - Anaemia [Unknown]
  - Decreased appetite [Unknown]
  - Monocyte count decreased [Unknown]
  - Constipation [Unknown]
  - Bone marrow failure [Unknown]
  - Alanine aminotransferase increased [Unknown]
  - Hypertension [Unknown]
  - Thrombocytopenia [Unknown]
  - Leukopenia [Unknown]
  - Nausea [Unknown]
  - Epistaxis [Unknown]
